FAERS Safety Report 11004208 (Version 1)
Quarter: 2015Q2

REPORT INFORMATION
  Report Type: Spontaneous
  Country: PL (occurrence: PL)
  Receive Date: 20150409
  Receipt Date: 20150409
  Transmission Date: 20150821
  Serious: Yes (Hospitalization)
  Sender: FDA-Public Use
  Company Number: PL-TEVA-552160ISR

PATIENT
  Age: 55 Year
  Sex: Male

DRUGS (2)
  1. NAVIRELMEDAC [Suspect]
     Active Substance: VINORELBINE TARTRATE
     Route: 042
     Dates: start: 20150324
  2. CISPALTIN TEVA [Suspect]
     Active Substance: CISPLATIN
     Route: 042
     Dates: start: 20150324

REACTIONS (3)
  - General physical health deterioration [Recovering/Resolving]
  - Leukopenia [Recovering/Resolving]
  - Neutropenia [Recovering/Resolving]

NARRATIVE: CASE EVENT DATE: 20150324
